FAERS Safety Report 4603932-4 (Version None)
Quarter: 2005Q1

REPORT INFORMATION
  Report Type: 
  Country: None (occurrence: None)
  Receive Date: 20050309
  Receipt Date: 20050304
  Transmission Date: 20050727
  Serious: Yes (Other)
  Sender: FDA-Public Use
  Company Number: 004306

PATIENT
  Sex: Female

DRUGS (4)
  1. MEDROXYPROGESTERONE ACETATE [Suspect]
     Dosage: ORAL
     Route: 048
     Dates: start: 19950520, end: 19981001
  2. AYGESTIN [Suspect]
     Dosage: ORAL
     Route: 048
     Dates: start: 19950520, end: 19981001
  3. CENESTIN [Suspect]
     Dosage: ORAL
     Route: 048
     Dates: start: 19950520, end: 19981001
  4. FEMHRT [Suspect]
     Dosage: ORAL
     Route: 048
     Dates: start: 19950520, end: 19981001

REACTIONS (1)
  - BREAST CANCER [None]
